FAERS Safety Report 7544831-8 (Version None)
Quarter: 2011Q2

REPORT INFORMATION
  Report Type: 
  Country: None (occurrence: None)
  Receive Date: 20110614
  Receipt Date: 20091122
  Transmission Date: 20111010
  Serious: Yes (Death, Other)
  Sender: FDA-Public Use
  Company Number: US-BAYER-200940627NA

PATIENT
  Age: 1 Month
  Sex: Male
  Weight: 3.401 kg

DRUGS (15)
  1. RED BLOOD CELLS [Concomitant]
     Dosage: UNK
     Route: 042
     Dates: start: 20060823
  2. DIFLUCAN [Concomitant]
  3. PRIMACOR [Concomitant]
     Dosage: UNK
     Route: 042
     Dates: start: 20060823
  4. VANCOMYCIN [Concomitant]
  5. DOPAMINE HCL [Concomitant]
     Dosage: UNK
     Route: 042
     Dates: start: 20060823
  6. LASIX [Concomitant]
     Dosage: UNK
     Route: 042
     Dates: start: 20060811
  7. PROCAINAMIDE [Concomitant]
     Dosage: UNK
     Route: 042
     Dates: start: 20060823
  8. FENTANYL [Concomitant]
     Dosage: UNK
     Route: 042
     Dates: start: 20060823
  9. TRASYLOL [Suspect]
     Indication: ATRIAL SEPTAL DEFECT
     Dosage: 200 CC
     Route: 042
     Dates: start: 20060823
  10. ALBUMIN (HUMAN) [Concomitant]
     Dosage: UNK
     Route: 042
     Dates: start: 20060811
  11. VERSED [Concomitant]
     Dosage: UNK
     Route: 042
     Dates: start: 20060823
  12. LEVOPHED [Concomitant]
     Dosage: UNK
     Route: 042
     Dates: start: 20060823
  13. EPINEPHRINE [Concomitant]
     Dosage: UNK
     Route: 042
     Dates: start: 20060823
  14. TRASYLOL [Suspect]
     Indication: PULMONARY VALVE REPAIR
  15. VASOPRESSIN [Concomitant]
     Dosage: UNK
     Route: 042
     Dates: start: 20060823

REACTIONS (13)
  - MULTI-ORGAN FAILURE [None]
  - EMOTIONAL DISTRESS [None]
  - ANHEDONIA [None]
  - INJURY [None]
  - DEATH [None]
  - RENAL IMPAIRMENT [None]
  - UNEVALUABLE EVENT [None]
  - FEAR [None]
  - RENAL FAILURE [None]
  - RENAL INJURY [None]
  - PAIN [None]
  - STRESS [None]
  - ANXIETY [None]
